FAERS Safety Report 15483374 (Version 1)
Quarter: 2018Q4

REPORT INFORMATION
  Report Type: Spontaneous
  Country: US (occurrence: US)
  Receive Date: 20181010
  Receipt Date: 20181010
  Transmission Date: 20190205
  Serious: No
  Sender: FDA-Public Use
  Company Number: US-TARO-2018TAR00090

PATIENT
  Sex: Female

DRUGS (2)
  1. TRIAMCINOLONE ACETONIDE OINTMENT USP 0.1% [Suspect]
     Active Substance: TRIAMCINOLONE ACETONIDE
     Indication: CANDIDA INFECTION
     Dosage: UNK, UNK
     Route: 061
     Dates: start: 20180131
  2. NYSTATIN (FOUGERA) [Suspect]
     Active Substance: NYSTATIN
     Indication: SKIN CANDIDA
     Dosage: UNK, UNK
     Route: 061
     Dates: start: 20180131

REACTIONS (2)
  - Formication [Not Recovered/Not Resolved]
  - Off label use [Not Recovered/Not Resolved]

NARRATIVE: CASE EVENT DATE: 2018
